FAERS Safety Report 8523248-3 (Version None)
Quarter: 2012Q3

REPORT INFORMATION
  Report Type: 
  Country: None (occurrence: None)
  Receive Date: 20120709
  Receipt Date: 20120621
  Transmission Date: 20120928
  Serious: Yes (Hospitalization)
  Sender: FDA-Public Use
  Company Number: DSA_58192_2012

PATIENT
  Age: 63 Year
  Sex: Male

DRUGS (13)
  1. BISOPROLOL FUMARATE [Suspect]
     Indication: PRODUCT USED FOR UNKNOWN INDICATION
     Dosage: (0.3125 MG DAILY)
  2. ASPIRIN [Suspect]
     Indication: PRODUCT USED FOR UNKNOWN INDICATION
     Dosage: (100 MG QD ORAL)
     Route: 048
  3. LIPITOR [Suspect]
     Indication: PRODUCT USED FOR UNKNOWN INDICATION
     Dosage: (40 MG QD ORAL)
     Route: 048
  4. ALDACTONE [Suspect]
     Indication: PRODUCT USED FOR UNKNOWN INDICATION
     Dosage: (50 MG QD ORAL)
     Route: 048
  5. MAGLAX (MAGLAX - MAGNESIUM OXIDE) 250 MG (NOT SPECIFIED) [Suspect]
     Indication: PRODUCT USED FOR UNKNOWN INDICATION
     Dosage: (250 MG TID ORAL)
     Route: 048
  6. SIGMART (SIGMART - NICORANDIL) 5 MG (NOT SPECIFIED) [Suspect]
     Indication: PRODUCT USED FOR UNKNOWN INDICATION
     Dosage: (5 MG TID)
  7. ALLOPURINOL [Suspect]
     Indication: HYPERURICAEMIA
     Dosage: (DF ORAL)
  8. LANSOPRAZOLE [Suspect]
     Indication: PRODUCT USED FOR UNKNOWN INDICATION
     Dosage: (DF ORAL)
     Route: 048
  9. ENALAPRIL MALEATE [Suspect]
     Indication: CARDIAC FAILURE
     Dosage: (1.25 MG QD ORAL)
     Route: 048
  10. LASIX [Suspect]
     Indication: PRODUCT USED FOR UNKNOWN INDICATION
     Dosage: (120 MG BID ORAL)
     Route: 048
  11. PLAVIX [Suspect]
     Indication: PRODUCT USED FOR UNKNOWN INDICATION
     Dosage: (75 MG QD ORAL)
     Route: 048
  12. SAMSCA (SAMSCA - TOLVAPTAN) 15 MG NOT   SPECIFIED) [Suspect]
     Indication: PRODUCT USED FOR UNKNOWN INDICATION
     Dosage: (15 MG QD ORAL)
     Route: 048
  13. FERROUS CITRATE [Suspect]
     Indication: PRODUCT USED FOR UNKNOWN INDICATION
     Dosage: (100 MG BID ORAL)
     Route: 048

REACTIONS (1)
  - INTERSTITIAL LUNG DISEASE [None]
